FAERS Safety Report 6419615-4 (Version None)
Quarter: 2009Q4

REPORT INFORMATION
  Report Type: 
  Country: None (occurrence: None)
  Receive Date: 20091013
  Receipt Date: 20090807
  Transmission Date: 20100525
  Serious: No
  Sender: FDA-Public Use
  Company Number: 2009BM000187

PATIENT
  Age: 37 Year
  Sex: Male
  Weight: 87.9978 kg

DRUGS (2)
  1. KUVAN [Suspect]
     Indication: PHENYLKETONURIA
     Dosage: 1800 MG/KG;QD;PO
     Route: 048
     Dates: start: 20090710
  2. NUTRIENTS WITHOUT PHENYLALANINE [Concomitant]

REACTIONS (4)
  - HEADACHE [None]
  - HYPERACUSIS [None]
  - NASAL DRYNESS [None]
  - PHOTOPHOBIA [None]
